FAERS Safety Report 8553971-6 (Version None)
Quarter: 2012Q3

REPORT INFORMATION
  Report Type: 
  Country: None (occurrence: None)
  Receive Date: 20120731
  Receipt Date: 20120726
  Transmission Date: 20120928
  Serious: Yes (Hospitalization)
  Sender: FDA-Public Use
  Company Number: GB-PFIZER INC-2012180826

PATIENT
  Age: 76 Year
  Sex: Male

DRUGS (8)
  1. SERTRALINE HYDROCHLORIDE [Suspect]
     Indication: DEPRESSION
     Dosage: 50 MG, UNK
     Route: 048
     Dates: start: 20111101, end: 20120101
  2. LEVOTHYROXINE [Concomitant]
     Dosage: UNK
  3. OMEPRAZOLE [Concomitant]
     Dosage: UNK
  4. CANDESARTAN [Concomitant]
     Dosage: UNK
  5. BISOPROLOL [Concomitant]
     Dosage: UNK
  6. CITALOPRAM HYDROBROMIDE [Suspect]
     Dosage: 20 MG, UNK
     Route: 048
     Dates: start: 20120101
  7. AMLODIPINE [Concomitant]
     Dosage: UNK
  8. CITALOPRAM HYDROBROMIDE [Suspect]
     Indication: DEPRESSION
     Dosage: 10 MG, UNK
     Route: 048
     Dates: start: 20120501, end: 20120101

REACTIONS (3)
  - COUGH [None]
  - PULMONARY FIBROSIS [None]
  - DYSPNOEA [None]
